FAERS Safety Report 10080257 (Version 3)
Quarter: 2014Q2

REPORT INFORMATION
  Report Type: Spontaneous
  Country: US (occurrence: US)
  Receive Date: 20140415
  Receipt Date: 20140613
  Transmission Date: 20141212
  Serious: Yes (Death, Other)
  Sender: FDA-Public Use
  Company Number: US-PFIZER INC-2014104745

PATIENT
  Age: 49 Year
  Sex: Female

DRUGS (3)
  1. XELJANZ [Suspect]
     Indication: RHEUMATOID ARTHRITIS
     Dosage: 5 MG, 2X/DAY
     Route: 048
     Dates: start: 20140109
  2. BIOTIN [Concomitant]
     Dosage: UNK
  3. CENTRUM [Concomitant]
     Dosage: UNK

REACTIONS (3)
  - Haemorrhage intracranial [Fatal]
  - Circulatory collapse [Unknown]
  - Headache [Unknown]
